FAERS Safety Report 7492125-1 (Version None)
Quarter: 2011Q2

REPORT INFORMATION
  Report Type: 
  Country: None (occurrence: None)
  Receive Date: 20110519
  Receipt Date: 20110505
  Transmission Date: 20111010
  Serious: Yes (Hospitalization)
  Sender: FDA-Public Use
  Company Number: US-JNJFOC-20110503618

PATIENT
  Age: 70 Year
  Sex: Male

DRUGS (9)
  1. REMICADE [Suspect]
     Indication: COLITIS ULCERATIVE
     Route: 042
     Dates: start: 20040227, end: 20110325
  2. OMEPRAZOLE [Concomitant]
  3. OXYCODONE HCL [Concomitant]
  4. MULTI-VITAMINS [Concomitant]
  5. SULFASALAZINE [Concomitant]
  6. METFORMIN HCL [Concomitant]
  7. GABAPENTIN [Concomitant]
  8. VITAMIN B-12 [Concomitant]
  9. AZATHIOPRINE [Concomitant]

REACTIONS (1)
  - ANKLE FRACTURE [None]
